FAERS Safety Report 10569867 (Version 1)
Quarter: 2014Q4

REPORT INFORMATION
  Report Type: Spontaneous
  Country: MX (occurrence: MX)
  Receive Date: 20141107
  Receipt Date: 20141107
  Transmission Date: 20150529
  Serious: Yes (Other)
  Sender: FDA-Public Use
  Company Number: MX-AMGEN-MEXSP2014086211

PATIENT
  Age: 55 Year
  Sex: Female

DRUGS (1)
  1. ENBREL [Suspect]
     Active Substance: ETANERCEPT
     Indication: PRODUCT USED FOR UNKNOWN INDICATION
     Dosage: 50 G, MONTHLY
     Route: 065

REACTIONS (2)
  - Ocular hyperaemia [Unknown]
  - Sjogren^s syndrome [Unknown]

NARRATIVE: CASE EVENT DATE: 2014
